FAERS Safety Report 11972534 (Version 2)
Quarter: 2016Q1

REPORT INFORMATION
  Report Type: Spontaneous
  Country: US (occurrence: US)
  Receive Date: 20160128
  Receipt Date: 20160201
  Transmission Date: 20160526
  Serious: No
  Sender: FDA-Public Use
  Company Number: US-GLAXOSMITHKLINE-US2016009226

PATIENT
  Age: 42 Year
  Sex: Female

DRUGS (2)
  1. ALLI [Suspect]
     Active Substance: ORLISTAT
     Indication: WEIGHT LOSS DIET
     Dosage: UNK
     Dates: start: 2008, end: 201601
  2. ALLI [Suspect]
     Active Substance: ORLISTAT
     Dosage: UNK
     Dates: start: 20160112, end: 201601

REACTIONS (3)
  - Drug ineffective [Unknown]
  - Gastrointestinal disorder [Recovered/Resolved]
  - Product quality issue [Unknown]
